FAERS Safety Report 8540102-1 (Version None)
Quarter: 2012Q3

REPORT INFORMATION
  Report Type: 
  Country: None (occurrence: None)
  Receive Date: 20120726
  Receipt Date: 20120723
  Transmission Date: 20120928
  Serious: Yes (Hospitalization)
  Sender: FDA-Public Use
  Company Number: PHHY2012FI062329

PATIENT
  Age: 50 Year
  Sex: Female

DRUGS (5)
  1. HALOPERIDOL [Concomitant]
     Dosage: UNK UKN, UNK
  2. ABILIFY [Concomitant]
     Dosage: UNK UKN, UNK
  3. METRONIDAZOLE HCL [Concomitant]
     Dosage: 400 MG, TID
  4. CLOZAPINE [Suspect]
     Dosage: 250 MG, DAILY
     Dates: start: 20120719
  5. CLOZAPINE [Suspect]
     Dosage: 500 MG, PER DAY

REACTIONS (4)
  - MALAISE [None]
  - HEPATIC ENZYME INCREASED [None]
  - UROSEPSIS [None]
  - BLOOD CREATININE INCREASED [None]
